FAERS Safety Report 7539925-7 (Version None)
Quarter: 2011Q2

REPORT INFORMATION
  Report Type: 
  Country: None (occurrence: None)
  Receive Date: 20110603
  Receipt Date: 20110510
  Transmission Date: 20111010
  Serious: Yes (Other)
  Sender: FDA-Public Use
  Company Number: CC2011-006

PATIENT
  Age: 77 Year
  Sex: Female
  Weight: 66 kg

DRUGS (4)
  1. ACYCLOVIR [Suspect]
     Dosage: 400 MG, TWICE DAILY, ORAL
     Route: 048
     Dates: start: 20101222, end: 20110101
  2. RITUXIMAB [Suspect]
     Dosage: 375 MG/M2, Q 28 DAYS, IV
     Route: 042
     Dates: start: 20101222, end: 20110101
  3. TREANDA [Suspect]
     Indication: CHRONIC LYMPHOCYTIC LEUKAEMIA
     Dosage: 90 MG/M2, Q 28 DAYS, IV
     Route: 042
     Dates: start: 20101222
  4. DAPSONE [Suspect]
     Dosage: 100 MG, DAILY, ORAL CTD
     Route: 048
     Dates: start: 20101222, end: 20110101

REACTIONS (4)
  - SKIN EXFOLIATION [None]
  - PRURIGO [None]
  - RASH MACULO-PAPULAR [None]
  - RASH ERYTHEMATOUS [None]
